FAERS Safety Report 6043592-1 (Version None)
Quarter: 2009Q1

REPORT INFORMATION
  Report Type: 
  Country: None (occurrence: None)
  Receive Date: 20090115
  Receipt Date: 20090105
  Transmission Date: 20090719
  Serious: Yes (Hospitalization, Disabling, Other)
  Sender: FDA-Public Use
  Company Number: 2006JP005228

PATIENT
  Age: 39 Year
  Sex: Male

DRUGS (15)
  1. TACROLIMUS [Suspect]
     Indication: RENAL AND PANCREAS TRANSPLANT
     Dosage: 0.05 MG/KG, BID, ORAL; ORAL
     Route: 048
     Dates: start: 20060525, end: 20060526
  2. PROGRAF [Suspect]
     Indication: RENAL AND PANCREAS TRANSPLANT
     Dosage: 0.024 MG/KG, CONTINUOUS, IV DRIP
     Route: 041
     Dates: start: 20060526, end: 20060528
  3. PROGRAF [Suspect]
     Indication: RENAL AND PANCREAS TRANSPLANT
  4. METHYLPREDNISOLONE [Concomitant]
  5. PREDNISOLONE [Concomitant]
  6. CELLCEPT (MYCOPHENOLAT MOFETIL) CAPSULE [Concomitant]
  7. SIMULECT [Concomitant]
  8. HUMULIN R [Suspect]
  9. PROSTAGLANDIN E1 (ALPROSTADIL) INJECTION [Concomitant]
  10. HEPARIN [Concomitant]
  11. FOY (GABEXATE MESILATE) INJECTION [Concomitant]
  12. CEFAMEZIN (CEFAZOLIN) INJECTION [Concomitant]
  13. FUNGUARD (MICAFUNGIN) INJECTION [Concomitant]
  14. OMEPRAL INJECTION [Concomitant]
  15. METHYLPREDNISOLONE 16MG TAB [Concomitant]

REACTIONS (6)
  - COMPLICATIONS OF TRANSPLANTED PANCREAS [None]
  - HYPERAMYLASAEMIA [None]
  - OPPORTUNISTIC INFECTION [None]
  - PNEUMONIA CRYPTOCOCCAL [None]
  - PULMONARY CAVITATION [None]
  - THROMBOTIC MICROANGIOPATHY [None]
